FAERS Safety Report 17393891 (Version 2)
Quarter: 2020Q1

REPORT INFORMATION
  Report Type: Spontaneous
  Country: US (occurrence: US)
  Receive Date: 20200210
  Receipt Date: 20200303
  Transmission Date: 20200409
  Serious: No
  Sender: FDA-Public Use
  Company Number: US-GLAXOSMITHKLINE-US2020019880

PATIENT
  Sex: Female

DRUGS (2)
  1. ABREVA [Suspect]
     Active Substance: DOCOSANOL
     Dosage: UNK (AT LEAST 4-5 TIMES A DAY, USED IT PROBABLY A WEEK)
     Dates: start: 201910
  2. ABREVA [Suspect]
     Active Substance: DOCOSANOL
     Indication: ORAL HERPES
     Dosage: UNK (AT LEAST 4-5 TIMES A DAY, USED IT PROBABLY A WEEK)
     Dates: start: 201910

REACTIONS (3)
  - Incorrect product administration duration [Unknown]
  - Rebound effect [Not Recovered/Not Resolved]
  - Inappropriate schedule of product administration [Unknown]
